FAERS Safety Report 23949645 (Version 2)
Quarter: 2024Q3

REPORT INFORMATION
  Report Type: Spontaneous
  Country: NZ (occurrence: NZ)
  Receive Date: 20240607
  Receipt Date: 20240823
  Transmission Date: 20241017
  Serious: No
  Sender: MYLAN
  Company Number: NZ-MYLANLABS-2024M1051508

PATIENT
  Sex: Female

DRUGS (1)
  1. CLOZARIL [Suspect]
     Active Substance: CLOZAPINE
     Indication: Schizophrenia
     Dosage: UNK
     Route: 048
     Dates: start: 20191203

REACTIONS (1)
  - Hospice care [Unknown]
